FAERS Safety Report 9299138 (Version 1)
Quarter: 2013Q2

REPORT INFORMATION
  Report Type: Spontaneous
  Country: US (occurrence: US)
  Receive Date: 20130520
  Receipt Date: 20130520
  Transmission Date: 20140414
  Serious: Yes (Hospitalization)
  Sender: FDA-Public Use
  Company Number: US-UCBSA-079383

PATIENT
  Age: 28 Year
  Sex: Female

DRUGS (2)
  1. KEPPRA XR [Suspect]
     Indication: CONVULSION
     Dosage: 1000 MG IN THE MORNING AND 1000 MG IN THE AFTERNOON
     Dates: start: 2011
  2. LAMICTAL [Concomitant]
     Dosage: UNKNOWN DOSE

REACTIONS (3)
  - Epilepsy [Recovered/Resolved]
  - Pneumonia [Recovered/Resolved]
  - Inappropriate schedule of drug administration [Unknown]
